FAERS Safety Report 24713836 (Version 1)
Quarter: 2024Q4

REPORT INFORMATION
  Report Type: Spontaneous
  Country: CN (occurrence: CN)
  Receive Date: 20241209
  Receipt Date: 20241209
  Transmission Date: 20250115
  Serious: Yes (Other)
  Sender: MERCK
  Company Number: CN-009507513-2412CHN001779

PATIENT
  Age: 68 Year
  Sex: Male

DRUGS (10)
  1. TEMOZOLOMIDE [Suspect]
     Active Substance: TEMOZOLOMIDE
     Indication: Neuroendocrine tumour of the lung metastatic
     Dosage: 150 MILLIGRAM/SQ. METER, FROM DAY 10 TO DAY 14, EVERY 4 WEEKS
     Route: 048
     Dates: start: 202202, end: 202205
  2. ETOPOSIDE [Suspect]
     Active Substance: ETOPOSIDE
     Indication: Neuroendocrine tumour of the lung metastatic
     Dosage: 100 MILLIGRAM/SQ. METER, FROM DAY 1 TO DAY 3, AND REPEATED EVERY 3 WEEKS
     Route: 042
     Dates: start: 202101, end: 202105
  3. CISPLATIN [Suspect]
     Active Substance: CISPLATIN
     Indication: Neuroendocrine tumour of the lung metastatic
     Dosage: 25 MILLIGRAM/SQ. METER, FROM DAY 1 TO DAY 3, AND REPEATED EVERY 3 WEEKS
     Route: 042
     Dates: start: 202101, end: 202105
  4. TISLELIZUMAB [Suspect]
     Active Substance: TISLELIZUMAB
     Indication: Neuroendocrine tumour of the lung metastatic
     Dosage: 200 MILLIGRAM, Q3W
     Route: 042
     Dates: start: 202103, end: 202202
  5. CATEQUENTINIB [Suspect]
     Active Substance: CATEQUENTINIB
     Indication: Neuroendocrine tumour of the lung metastatic
     Dosage: 10 MILLIGRAM, FROM DAY 1 TO DAY 14 EVERY 3 WEEKS
     Route: 048
     Dates: start: 202107, end: 202202
  6. CATEQUENTINIB [Suspect]
     Active Substance: CATEQUENTINIB
     Dosage: 10 MILLIGRAM, FROM DAY 1 TO DAY 14 EVERY 3 WEEKS
     Route: 048
     Dates: start: 202211
  7. CAPECITABINE [Suspect]
     Active Substance: CAPECITABINE
     Indication: Neuroendocrine tumour of the lung metastatic
     Dosage: 750 MILLIGRAM/SQ. METER, TWICE DAILY, FROM DAY 1 TO DAY 14, EVERY 4 WEEKS
     Route: 048
     Dates: start: 202202, end: 202205
  8. VINORELBINE [Suspect]
     Active Substance: VINORELBINE TARTRATE
     Indication: Neuroendocrine tumour of the lung metastatic
     Dosage: 40 MILLIGRAM, EVERY MONDAY, WEDNESDAY AND FRIDAY
     Route: 048
     Dates: start: 202206, end: 2022
  9. IRINOTECAN [Suspect]
     Active Substance: IRINOTECAN
     Indication: Neuroendocrine tumour of the lung metastatic
     Dosage: 60 MILLIGRAM/SQ. METER, ON DAYS 1, 8, AND 15, EVERY 4 WEEKS
     Route: 042
     Dates: start: 202210, end: 2022
  10. CADONILIMAB [Suspect]
     Active Substance: CADONILIMAB
     Indication: Neuroendocrine tumour of the lung metastatic
     Dosage: 250 MILLIGRAM, Q3W
     Route: 042
     Dates: start: 202211

REACTIONS (3)
  - Acquired tracheo-oesophageal fistula [Unknown]
  - Drug resistance [Unknown]
  - Product use in unapproved indication [Unknown]

NARRATIVE: CASE EVENT DATE: 20220101
